FAERS Safety Report 5934007-X (Version None)
Quarter: 2008Q4

REPORT INFORMATION
  Report Type: 
  Country: None (occurrence: None)
  Receive Date: 20081029
  Receipt Date: 20081016
  Transmission Date: 20090506
  Serious: Yes (Other)
  Sender: FDA-Public Use
  Company Number: CH-GENENTECH-269331

PATIENT
  Age: 71 Year
  Sex: Female

DRUGS (1)
  1. MABTHERA [Suspect]
     Indication: RHEUMATOID ARTHRITIS
     Dosage: UNK
     Route: 042
     Dates: start: 20080317, end: 20080923

REACTIONS (2)
  - ANAPHYLACTIC SHOCK [None]
  - URTICARIA [None]
